FAERS Safety Report 4322866-6 (Version None)
Quarter: 2004Q1

REPORT INFORMATION
  Report Type: 
  Country: None (occurrence: None)
  Receive Date: 20040322
  Receipt Date: 20040308
  Transmission Date: 20041129
  Serious: Yes (Death)
  Sender: FDA-Public Use
  Company Number: 2004-113547-NL

PATIENT
  Age: 50 Year
  Sex: Male

DRUGS (3)
  1. DANAPAROID SODIUM [Suspect]
     Indication: HEPARIN-INDUCED THROMBOCYTOPENIA
     Dosage: 200 IU Q1H/400 IU Q1HR/1250 IU BID, INTRAVENOUS NOS
     Route: 042
  2. HEPARIN [Concomitant]
  3. FLUINDIONE [Concomitant]

REACTIONS (1)
  - PULMONARY HAEMORRHAGE [None]
